FAERS Safety Report 8361117-2 (Version None)
Quarter: 2012Q2

REPORT INFORMATION
  Report Type: 
  Country: None (occurrence: None)
  Receive Date: 20120515
  Receipt Date: 20120430
  Transmission Date: 20120825
  Serious: Yes (Death, Life-Threatening, Other)
  Sender: FDA-Public Use
  Company Number: US-ROCHE-650763

PATIENT

DRUGS (3)
  1. COPEGUS [Suspect]
     Indication: HEPATITIS C
     Dosage: DOSE: 1000-1200 MG/DAY OR 1000-1200 MG/DAY
     Route: 048
  2. PEGINTERFERON ALFA-2B [Suspect]
     Indication: HEPATITIS C
     Dosage: 1.5 UG/KG/WEEK OR 1 UG/KG/WEEK
  3. PEGASYS [Suspect]
     Indication: HEPATITIS C
     Route: 065

REACTIONS (15)
  - DEATH [None]
  - GASTROINTESTINAL DISORDER [None]
  - NEUTROPENIA [None]
  - INFECTION [None]
  - NEOPLASM [None]
  - DEPRESSION [None]
  - MENTAL DISORDER [None]
  - RESPIRATORY DISORDER [None]
  - HEPATOBILIARY DISEASE [None]
  - LYMPHOPENIA [None]
  - MYOCARDIAL INFARCTION [None]
  - SEPSIS [None]
  - CARDIOVASCULAR DISORDER [None]
  - NERVOUS SYSTEM DISORDER [None]
  - BLOOD DISORDER [None]
